FAERS Safety Report 5426430-7 (Version None)
Quarter: 2007Q3

REPORT INFORMATION
  Report Type: 
  Country: None (occurrence: None)
  Receive Date: 20070731
  Receipt Date: 20070619
  Transmission Date: 20080115
  Serious: No
  Sender: FDA-Public Use
  Company Number: US200706006147

PATIENT
  Age: 62 Year
  Sex: Female

DRUGS (3)
  1. BYETTA [Suspect]
     Indication: TYPE 2 DIABETES MELLITUS
     Dosage: 5 UG, AS NEEDED, SUBCUTANEOUS, 5 UG, AS NEEDED
     Route: 058
     Dates: start: 20070401
  2. AVANDAMET [Concomitant]
  3. GLYBURIDE [Concomitant]

REACTIONS (5)
  - BLOOD GLUCOSE DECREASED [None]
  - COLD SWEAT [None]
  - CONFUSIONAL STATE [None]
  - FEELING COLD [None]
  - TONGUE DISORDER [None]
